FAERS Safety Report 24318179 (Version 1)
Quarter: 2024Q3

REPORT INFORMATION
  Report Type: Spontaneous
  Country: US (occurrence: US)
  Receive Date: 20240913
  Receipt Date: 20240913
  Transmission Date: 20241017
  Serious: Yes (Other)
  Sender: SANOFI AVENTIS
  Company Number: US-SA-2024SA265277

PATIENT
  Age: 15 Year
  Sex: Male

DRUGS (2)
  1. ELOCTATE [Suspect]
     Active Substance: EFMOROCTOCOG ALFA
     Indication: Haemorrhage prophylaxis
     Dosage: INFUSE 3000 UNITS (+/-10%) EVERY 24 HOURS AS NEEDED FOR BLEEDING
     Route: 042
     Dates: end: 202409
  2. ELOCTATE [Suspect]
     Active Substance: EFMOROCTOCOG ALFA
     Indication: Haemorrhage prophylaxis
     Dosage: INFUSE 3000 UNITS (+/-10%) EVERY 24 HOURS AS NEEDED FOR BLEEDING
     Route: 042
     Dates: end: 202409

REACTIONS (2)
  - Atypical pneumonia [Unknown]
  - Pyrexia [Recovered/Resolved]

NARRATIVE: CASE EVENT DATE: 20240902
